FAERS Safety Report 9624371 (Version 2)
Quarter: 2013Q4

REPORT INFORMATION
  Report Type: Spontaneous
  Country: NL (occurrence: NL)
  Receive Date: 20131015
  Receipt Date: 20131120
  Transmission Date: 20140711
  Serious: No
  Sender: FDA-Public Use
  Company Number: NL-PFIZER INC-2013291394

PATIENT
  Age: 59 Year
  Sex: Female
  Weight: 98 kg

DRUGS (7)
  1. CLINDAMYCIN HCL [Suspect]
     Indication: MONONEURITIS
     Dosage: 300 MG, 4X/DAY
     Dates: start: 20130927, end: 20131002
  2. ATENOLOL [Concomitant]
     Dosage: 50 MG, 2X/DAY
     Dates: start: 1997
  3. SPIRONOLACTONE [Concomitant]
     Dosage: 50 MG, 1X/DAY
     Dates: start: 2000
  4. LOSEC MUPS [Concomitant]
     Dosage: 20 MG, 1X/DAY
     Dates: start: 2000
  5. TAMBOCOR [Concomitant]
     Dosage: 50 MG, 1X/DAY
     Dates: start: 2009
  6. NOVONORM [Concomitant]
     Dosage: 1 MG, 3X/DAY
     Dates: start: 200409
  7. FOSTER 100/6 [Concomitant]
     Dosage: 1 DF, 2X/DAY
     Dates: start: 2012

REACTIONS (4)
  - Pain [Recovering/Resolving]
  - Gastrointestinal disorder [Recovering/Resolving]
  - Vomiting [Recovering/Resolving]
  - Diarrhoea [Recovering/Resolving]
